FAERS Safety Report 17874029 (Version 4)
Quarter: 2020Q3

REPORT INFORMATION
  Report Type: Report from Study
  Country: BE (occurrence: BE)
  Receive Date: 20200609
  Receipt Date: 20200701
  Transmission Date: 20201103
  Serious: Yes (Hospitalization, Other)
  Sender: FDA-Public Use
  Company Number: BE-GLAXOSMITHKLINE-BE2020GSK094117

PATIENT
  Age: 65 Year
  Sex: Male
  Weight: 60.2 kg

DRUGS (1)
  1. NIRAPARIB [Suspect]
     Active Substance: NIRAPARIB
     Indication: SQUAMOUS CELL CARCINOMA
     Dosage: 200 MG ONCE DAILY
     Route: 048
     Dates: start: 20200526, end: 20200601

REACTIONS (2)
  - Pneumonia aspiration [Not Recovered/Not Resolved]
  - Staphylococcal sepsis [Not Recovered/Not Resolved]

NARRATIVE: CASE EVENT DATE: 20200602
